FAERS Safety Report 11990779 (Version 1)
Quarter: 2016Q1

REPORT INFORMATION
  Report Type: Spontaneous
  Country: US (occurrence: US)
  Receive Date: 20160202
  Receipt Date: 20160202
  Transmission Date: 20160526
  Serious: No
  Sender: FDA-Public Use
  Company Number: US-GALDERMA-US15008742

PATIENT
  Age: 13 Year
  Sex: Female

DRUGS (6)
  1. EPIDUO [Suspect]
     Active Substance: ADAPALENE\BENZOYL PEROXIDE
     Indication: ACNE
     Dosage: 0.1% / 2.5%
     Route: 061
     Dates: start: 2014, end: 2015
  2. EPIDUO [Suspect]
     Active Substance: ADAPALENE\BENZOYL PEROXIDE
     Indication: ACNE
     Dosage: 0.1% / 2.5%
     Route: 061
     Dates: start: 20151120
  3. CETAPHIL DERMACONTROL SPF 30 [Concomitant]
     Active Substance: AVOBENZONE\OCTISALATE\OCTOCRYLENE
     Indication: DRY SKIN PROPHYLAXIS
     Route: 061
  4. ERYTHROMYCIN 3% AND BENZOYL PEROXIDE 5% TOPICAL GEL [Concomitant]
     Indication: ACNE
     Route: 061
     Dates: start: 20151120
  5. CETAPHIL DERMACONTROL FOAM WASH [Concomitant]
     Active Substance: COSMETICS
     Indication: THERAPEUTIC SKIN CARE TOPICAL
     Route: 061
  6. UNSPECIFIED HYPOALLERGENIC MAKE UP [Concomitant]
     Route: 061

REACTIONS (2)
  - Drug ineffective [Recovering/Resolving]
  - Expired product administered [Not Recovered/Not Resolved]

NARRATIVE: CASE EVENT DATE: 2014
